FAERS Safety Report 7250140-7 (Version None)
Quarter: 2011Q1

REPORT INFORMATION
  Report Type: 
  Country: None (occurrence: None)
  Receive Date: 20110128
  Receipt Date: 20110125
  Transmission Date: 20110831
  Serious: Yes (Other)
  Sender: FDA-Public Use
  Company Number: DE-SANOFI-AVENTIS-2011SA004662

PATIENT
  Sex: Female

DRUGS (1)
  1. MULTAQ [Suspect]
     Route: 065
     Dates: start: 20110101

REACTIONS (3)
  - ATRIAL FIBRILLATION [None]
  - HEART RATE INCREASED [None]
  - ATRIAL FLUTTER [None]
